FAERS Safety Report 4281129-8 (Version None)
Quarter: 2004Q1

REPORT INFORMATION
  Report Type: 
  Country: None (occurrence: None)
  Receive Date: 20040105
  Receipt Date: 20030924
  Transmission Date: 20041129
  Serious: No
  Sender: FDA-Public Use
  Company Number: SU-2003-001806

PATIENT
  Age: 51 Year
  Sex: Male
  Weight: 145.151 kg

DRUGS (2)
  1. BENICAR HCT [Suspect]
     Indication: HYPERTENSION
     Dosage: 40.25 MG QD PO
     Dates: start: 20030916, end: 20030919
  2. ALLEGRA-D [Concomitant]

REACTIONS (1)
  - DYSPNOEA [None]
